FAERS Safety Report 7260798-4 (Version None)
Quarter: 2011Q1

REPORT INFORMATION
  Report Type: 
  Country: None (occurrence: None)
  Receive Date: 20110130
  Receipt Date: 20101122
  Transmission Date: 20110831
  Serious: No
  Sender: FDA-Public Use
  Company Number: US-ABBOTT-10P-163-0687196-00

PATIENT
  Sex: Male
  Weight: 77.18 kg

DRUGS (8)
  1. PREDNISONE [Concomitant]
     Indication: CROHN'S DISEASE
  2. MERCAPTOPURINE [Concomitant]
     Indication: CROHN'S DISEASE
  3. ASCORBIC ACID [Concomitant]
     Indication: VITAMIN SUPPLEMENTATION
  4. VITAMIN D [Concomitant]
     Indication: VITAMIN SUPPLEMENTATION
  5. VITAMIN B-12 [Concomitant]
     Indication: VITAMIN SUPPLEMENTATION
  6. MULTI-VITAMIN [Concomitant]
     Indication: VITAMIN SUPPLEMENTATION
  7. HUMIRA [Suspect]
     Indication: CROHN'S DISEASE
     Dates: start: 20101013
  8. CALCIUM [Concomitant]
     Indication: MINERAL SUPPLEMENTATION

REACTIONS (7)
  - ANAEMIA [None]
  - ARTHRALGIA [None]
  - RASH [None]
  - BACK PAIN [None]
  - PAIN [None]
  - PAIN OF SKIN [None]
  - NAUSEA [None]
